FAERS Safety Report 4577008-9 (Version None)
Quarter: 2005Q1

REPORT INFORMATION
  Report Type: 
  Country: None (occurrence: None)
  Receive Date: 20050204
  Receipt Date: 20050120
  Transmission Date: 20050727
  Serious: Yes (Other)
  Sender: FDA-Public Use
  Company Number: 601679

PATIENT
  Age: 46 Year
  Sex: Male

DRUGS (1)
  1. ADVATE (ANTIHEMOPHILIC FACTOR (RECOMBINANT), PLASMA/ALBUMIN FREE METHO [Suspect]
     Indication: SURGERY
     Dosage: 2000 IU;BID
     Dates: start: 20041105, end: 20041124

REACTIONS (2)
  - FACTOR VIII INHIBITION [None]
  - SURGERY [None]
